FAERS Safety Report 11643530 (Version 1)
Quarter: 2015Q4

REPORT INFORMATION
  Report Type: Spontaneous
  Country: US (occurrence: None)
  Receive Date: 20151019
  Receipt Date: 20151019
  Transmission Date: 20160304
  Serious: Yes (Hospitalization, Disabling)
  Sender: FDA-Public Use
  Company Number: None

PATIENT
  Age: 52 Year
  Sex: Female
  Weight: 74.84 kg

DRUGS (6)
  1. AMPYRA [Suspect]
     Active Substance: DALFAMPRIDINE
     Indication: GAIT DISTURBANCE
     Dosage: TAKEN BY MOUTH (PILLS)
  2. LACERATE (HIGH BLOOD PRESSURE) [Concomitant]
  3. VIT. D [Concomitant]
  4. MAGNEZIME [Concomitant]
  5. OXYBUTININ [Concomitant]
     Active Substance: OXYBUTYNIN\OXYBUTYNIN CHLORIDE
  6. CITALOPRAM [Concomitant]
     Active Substance: CITALOPRAM HYDROBROMIDE

REACTIONS (8)
  - Asthenia [None]
  - Dehydration [None]
  - Fatigue [None]
  - Muscle tightness [None]
  - Syncope [None]
  - Blood potassium decreased [None]
  - Peripheral swelling [None]
  - Arthritis [None]

NARRATIVE: CASE EVENT DATE: 20150822
